FAERS Safety Report 10348033 (Version 1)
Quarter: 2014Q3

REPORT INFORMATION
  Report Type: Spontaneous
  Country: US (occurrence: None)
  Receive Date: 20140725
  Receipt Date: 20140725
  Transmission Date: 20150326
  Serious: Yes (Other)
  Sender: FDA-Public Use
  Company Number: 2014-US-008648

PATIENT
  Age: 14 Year
  Sex: Male

DRUGS (2)
  1. ERWINAZE [Suspect]
     Active Substance: ASPARAGINASE ERWINIA CHRYSANTHEMI
     Indication: B PRECURSOR TYPE ACUTE LEUKAEMIA
     Dosage: 20000 IU/M2, PER DOSE, THRICE WEEKLY FOR SIX DOSES DURING REMISSION INDUCTIOIN, INTRAVENOUS
     Route: 042
  2. ONCASPAR [Suspect]
     Active Substance: PEGASPARGASE
     Indication: B PRECURSOR TYPE ACUTE LEUKAEMIA
     Route: 042

REACTIONS (1)
  - Hypersensitivity [None]
